FAERS Safety Report 6618048-5 (Version None)
Quarter: 2010Q1

REPORT INFORMATION
  Report Type: 
  Country: None (occurrence: None)
  Receive Date: 20100308
  Receipt Date: 20100226
  Transmission Date: 20100710
  Serious: Yes (Hospitalization)
  Sender: FDA-Public Use
  Company Number: GB-BRISTOL-MYERS SQUIBB COMPANY-15000078

PATIENT
  Age: 49 Year
  Sex: Female

DRUGS (3)
  1. GLUCOPHAGE [Suspect]
     Indication: TYPE 2 DIABETES MELLITUS
     Dosage: MAY06-01DEC09 INTERPTD ON 2DEC09 RESTARTED ON 3DEC09
     Dates: start: 20060501
  2. ACTOS [Suspect]
     Indication: TYPE 2 DIABETES MELLITUS
     Dosage: 12NOV09-01DEC09(19DAYS)(ONG) INTERPTD ON 2DEC09 RESTARTED ON 3DEC09
     Dates: start: 20091112
  3. BYETTA [Suspect]
     Indication: TYPE 2 DIABETES MELLITUS
     Dosage: 20MCG:22JUN07-01DEC09,10 MG:24MAY07-21JUN07(28D) INTERPTD ON 2DEC09 RESTARTED ON 3DEC09
     Route: 058
     Dates: start: 20070524

REACTIONS (1)
  - SALPINGO-OOPHORECTOMY BILATERAL [None]
